FAERS Safety Report 14169574 (Version 1)
Quarter: 2017Q4

REPORT INFORMATION
  Report Type: Spontaneous
  Country: US (occurrence: US)
  Receive Date: 20171108
  Receipt Date: 20171108
  Transmission Date: 20180321
  Serious: No
  Sender: FDA-Public Use
  Company Number: US-009507513-1710USA005584

PATIENT
  Age: 23 Year
  Sex: Female
  Weight: 63.49 kg

DRUGS (1)
  1. NEXPLANON [Suspect]
     Active Substance: ETONOGESTREL
     Indication: CONTRACEPTION
     Dosage: 1 ROD, 3 YEARS IMPLANT INSIDE THE LEFT ARM
     Route: 059

REACTIONS (5)
  - Menorrhagia [Unknown]
  - Incorrect drug administration duration [Unknown]
  - Pain [Unknown]
  - Hot flush [Unknown]
  - Pain in extremity [Unknown]

NARRATIVE: CASE EVENT DATE: 20170823
